FAERS Safety Report 14560624 (Version 2)
Quarter: 2018Q1

REPORT INFORMATION
  Report Type: Spontaneous
  Country: US (occurrence: US)
  Receive Date: 20180222
  Receipt Date: 20180301
  Transmission Date: 20180509
  Serious: Yes (Death, Other)
  Sender: FDA-Public Use
  Company Number: US-ALKEM LABORATORIES LIMITED-US-ALKEM-2018-00666

PATIENT
  Age: 19 Year
  Sex: Male

DRUGS (1)
  1. LAMOTRIGINE. [Suspect]
     Active Substance: LAMOTRIGINE
     Indication: PRODUCT USED FOR UNKNOWN INDICATION
     Dosage: 4 G, UNK
     Route: 065

REACTIONS (8)
  - Aspiration [Unknown]
  - Atrioventricular block complete [Fatal]
  - Seizure [Unknown]
  - Multiple organ dysfunction syndrome [Fatal]
  - Respiratory arrest [Unknown]
  - Electrocardiogram QRS complex prolonged [Unknown]
  - Intentional overdose [Fatal]
  - Generalised tonic-clonic seizure [Recovered/Resolved]
